FAERS Safety Report 9569296 (Version 1)
Quarter: 2013Q3

REPORT INFORMATION
  Report Type: Spontaneous
  Country: US (occurrence: US)
  Receive Date: 20130930
  Receipt Date: 20130930
  Transmission Date: 20140515
  Serious: No
  Sender: FDA-Public Use
  Company Number: US-AMGEN-USASP2013058714

PATIENT
  Age: 36 Year
  Sex: Female
  Weight: 77.1 kg

DRUGS (4)
  1. ENBREL [Suspect]
     Indication: PRODUCT USED FOR UNKNOWN INDICATION
     Dosage: 50 MG, 2 TIMES/WK
     Route: 058
  2. PULMICORT [Concomitant]
     Dosage: 180 MUG, UNK
  3. PREVACID [Concomitant]
     Dosage: 15 MG, UNK
  4. CLARITIN-D [Concomitant]
     Dosage: 5-120 MG, UNK

REACTIONS (1)
  - Injection site erythema [Unknown]
